FAERS Safety Report 20650545 (Version 2)
Quarter: 2022Q2

REPORT INFORMATION
  Report Type: Spontaneous
  Country: US (occurrence: US)
  Receive Date: 20220329
  Receipt Date: 20220407
  Transmission Date: 20220721
  Serious: Yes (Hospitalization, Other)
  Sender: FDA-Public Use
  Company Number: US-TEVA-2022-US-2021437

PATIENT
  Age: 15 Year
  Sex: Female

DRUGS (2)
  1. FLUDROCORTISONE [Suspect]
     Active Substance: FLUDROCORTISONE
     Indication: Postural orthostatic tachycardia syndrome
     Route: 065
  2. FLUCONAZOLE [Concomitant]
     Active Substance: FLUCONAZOLE
     Indication: Oesophageal candidiasis
     Route: 048

REACTIONS (4)
  - Migraine [Unknown]
  - Menstrual disorder [Unknown]
  - Muscle spasms [Unknown]
  - Gait disturbance [Unknown]
